FAERS Safety Report 15571465 (Version 1)
Quarter: 2018Q4

REPORT INFORMATION
  Report Type: Spontaneous
  Country: US (occurrence: US)
  Receive Date: 20181030
  Receipt Date: 20181030
  Transmission Date: 20190205
  Serious: Yes (Other)
  Sender: FDA-Public Use
  Company Number: None

PATIENT
  Age: 29 Year
  Sex: Female
  Weight: 60.75 kg

DRUGS (1)
  1. ACNE SOLUTIONS EMERGENCY [Suspect]
     Active Substance: BENZOYL PEROXIDE
     Indication: ACNE
     Dosage: ?          QUANTITY:1 ONE SMALL DROP;?
     Route: 061
     Dates: start: 20181024, end: 20181025

REACTIONS (4)
  - Pruritus [None]
  - Erythema [None]
  - Skin exfoliation [None]
  - Swelling face [None]

NARRATIVE: CASE EVENT DATE: 20181024
